FAERS Safety Report 10004723 (Version 4)
Quarter: 2014Q2

REPORT INFORMATION
  Report Type: Spontaneous
  Country: IT (occurrence: IT)
  Receive Date: 20140312
  Receipt Date: 20140404
  Transmission Date: 20141212
  Serious: Yes (Hospitalization)
  Sender: FDA-Public Use
  Company Number: IT-PFIZER INC-2014057656

PATIENT
  Age: 73 Year
  Sex: Female

DRUGS (9)
  1. RAMIPRIL [Suspect]
     Indication: HYPERTENSION
     Dosage: 1.25 MG, DAILY
     Route: 048
     Dates: start: 20130801, end: 20140224
  2. COUMADIN [Concomitant]
     Dosage: UNK
  3. CONGESCOR [Concomitant]
     Dosage: UNK
  4. HUMALOG [Concomitant]
     Dosage: UNK
  5. LASIX [Concomitant]
     Dosage: UNK
  6. TORVAST [Concomitant]
     Dosage: UNK
  7. DIAMOX [Concomitant]
     Dosage: UNK
  8. SODIUM BICARBONATE [Concomitant]
     Dosage: UNK
  9. CALCIUM CARBONATE [Concomitant]
     Dosage: UNK

REACTIONS (4)
  - Angioedema [Recovered/Resolved]
  - Metabolic acidosis [Recovered/Resolved]
  - Dyspnoea [Recovered/Resolved]
  - Drug ineffective [Recovered/Resolved]
